FAERS Safety Report 16264016 (Version 1)
Quarter: 2019Q2

REPORT INFORMATION
  Report Type: Spontaneous
  Country: US (occurrence: US)
  Receive Date: 20190502
  Receipt Date: 20190502
  Transmission Date: 20190711
  Serious: Yes (Life-Threatening, Hospitalization, Other)
  Sender: FDA-Public Use
  Company Number: US-MYLANLABS-2019M1041411

PATIENT
  Age: 28 Year
  Sex: Male

DRUGS (3)
  1. TESTOSTERONE. [Suspect]
     Active Substance: TESTOSTERONE
     Indication: SUPPLEMENTATION THERAPY
     Route: 048
  2. TRENBOLONE [Suspect]
     Active Substance: TRENBOLONE
     Indication: SUPPLEMENTATION THERAPY
     Route: 048
  3. CLENBUTEROL [Suspect]
     Active Substance: CLENBUTEROL
     Indication: SUPPLEMENTATION THERAPY
     Route: 048

REACTIONS (3)
  - Hyperthyroidism [Recovering/Resolving]
  - Pulmonary oedema [Unknown]
  - Cardiogenic shock [Recovering/Resolving]
